FAERS Safety Report 19234488 (Version 2)
Quarter: 2021Q4

REPORT INFORMATION
  Report Type: Spontaneous
  Country: RU (occurrence: RU)
  Receive Date: 20210508
  Receipt Date: 20211103
  Transmission Date: 20220303
  Serious: Yes (Death, Other)
  Sender: FDA-Public Use
  Company Number: RU-AMGEN-RUSSP2021067107

PATIENT
  Sex: Female

DRUGS (3)
  1. XGEVA [Suspect]
     Active Substance: DENOSUMAB
     Indication: Breast cancer metastatic
     Dosage: UNK
     Route: 065
     Dates: start: 201911
  2. ANASTROZOLE [Concomitant]
     Active Substance: ANASTROZOLE
  3. RIBOCICLIB [Concomitant]
     Active Substance: RIBOCICLIB
     Dosage: 600 MILLIGRAM, Q3WK

REACTIONS (3)
  - Hepatic cytolysis [Fatal]
  - Breast cancer metastatic [Fatal]
  - PIK3CA-activated mutation [Unknown]

NARRATIVE: CASE EVENT DATE: 20200101
